FAERS Safety Report 4266204-6 (Version None)
Quarter: 2004Q1

REPORT INFORMATION
  Report Type: 
  Country: None (occurrence: None)
  Receive Date: 20040106
  Receipt Date: 20031222
  Transmission Date: 20041129
  Serious: Yes (Hospitalization)
  Sender: FDA-Public Use
  Company Number: 2003GB03408

PATIENT
  Sex: Male

DRUGS (5)
  1. ZESTRIL [Suspect]
  2. CIPROFLOXACIN [Suspect]
     Indication: PROSTATITIS
     Dosage: 500 MG DAILY
  3. CIPROFLOXACIN [Suspect]
     Indication: URINARY TRACT INFECTION
     Dosage: 500 MG DAILY
  4. INDOMETHACIN [Suspect]
     Indication: PROSTATITIS
     Dosage: 75 MG DAILY
  5. INDOMETHACIN [Suspect]
     Indication: URINARY TRACT INFECTION
     Dosage: 75 MG DAILY

REACTIONS (5)
  - ARRHYTHMIA SUPRAVENTRICULAR [None]
  - BLOOD PRESSURE SYSTOLIC DECREASED [None]
  - DIZZINESS [None]
  - FATIGUE [None]
  - VENTRICULAR ARRHYTHMIA [None]
